FAERS Safety Report 10193970 (Version 1)
Quarter: 2014Q2

REPORT INFORMATION
  Report Type: Spontaneous
  Country: US (occurrence: US)
  Receive Date: 20140524
  Receipt Date: 20140524
  Transmission Date: 20141212
  Serious: No
  Sender: FDA-Public Use
  Company Number: US-SANOFI-AVENTIS-2013SA053605

PATIENT
  Sex: Female

DRUGS (10)
  1. LANTUS [Suspect]
  2. TETRACYCLINE [Concomitant]
  3. ZITHROMAX [Concomitant]
  4. CEPHALOSPORINS AND RELATED SUBSTANCES [Concomitant]
  5. AVELOX [Concomitant]
  6. HYDROCODONE [Concomitant]
  7. CODEINE [Concomitant]
  8. BIAXIN [Concomitant]
  9. NEURONTIN [Concomitant]
  10. HUMALOG [Concomitant]

REACTIONS (1)
  - Respiratory disorder [Unknown]
